FAERS Safety Report 4785915-7 (Version None)
Quarter: 2005Q4

REPORT INFORMATION
  Report Type: 
  Country: None (occurrence: None)
  Receive Date: 20051003
  Receipt Date: 20050922
  Transmission Date: 20060501
  Serious: Yes (Hospitalization)
  Sender: FDA-Public Use
  Company Number: GB-NOVOPROD-247131

PATIENT
  Age: 63 Year
  Sex: Female
  Weight: 106 kg

DRUGS (9)
  1. LEVEMIR [Suspect]
     Indication: DIABETES MELLITUS
     Dosage: 72 IU, QD
  2. NOVORAPID [Concomitant]
     Indication: DIABETES MELLITUS
     Dosage: 52 IU, QD
  3. BISOPROLOL [Concomitant]
     Dosage: 2.5 MG, QD
     Route: 048
  4. BENDROFLUAZIDE [Concomitant]
     Dosage: 2.5 MG, QD
     Route: 048
  5. CLOPIDOGREL [Concomitant]
     Dosage: 75 MG, QD
     Route: 048
  6. ISOSORBIDE MONONITRATE [Concomitant]
     Dosage: 20 MG, QD
     Route: 048
  7. RAMIPRIL [Concomitant]
     Dosage: 10 MG, QD
     Route: 048
  8. LANSOPRAZOLE [Concomitant]
     Dosage: 15 MG, QD
     Route: 048
  9. PARACETAMOL [Concomitant]
     Dosage: UNK, PRN

REACTIONS (2)
  - EAR PAIN [None]
  - OTORRHOEA [None]
